FAERS Safety Report 7475424-9 (Version None)
Quarter: 2011Q2

REPORT INFORMATION
  Report Type: 
  Country: None (occurrence: None)
  Receive Date: 20110512
  Receipt Date: 20110504
  Transmission Date: 20111010
  Serious: Yes (Death, Hospitalization)
  Sender: FDA-Public Use
  Company Number: US-CELGENEUS-163-AB007-11042247

PATIENT
  Sex: Female
  Weight: 47.4 kg

DRUGS (29)
  1. ABRAXANE [Suspect]
     Dosage: 380 MILLIGRAM
     Route: 065
     Dates: start: 20110202
  2. FENTANYL [Concomitant]
     Dosage: 25 MICROGRAM
     Route: 062
  3. OXYCODONE/ACETAMINOPHEN [Concomitant]
     Dosage: 5 MILLIGRAM
     Route: 065
  4. CARBOPLATIN [Suspect]
     Dosage: 900 MILLIGRAM
     Route: 051
     Dates: start: 20110202, end: 20110202
  5. CARVEDILOL [Concomitant]
     Indication: HYPERTENSION
     Dosage: 3.125 MILLIGRAM
     Route: 048
  6. OXYCODONE HCL [Concomitant]
     Indication: PAIN
     Dosage: 10 MILLIGRAM
     Route: 048
  7. OXYCODONE HCL [Concomitant]
     Indication: COUGH
     Dosage: 20 MILLIGRAM
     Route: 048
  8. FONDAPARINUX SODIUM [Concomitant]
     Indication: PULMONARY EMBOLISM
     Dosage: 5 MILLIGRAM
     Route: 058
  9. LOVENOX [Concomitant]
     Indication: PULMONARY EMBOLISM
     Dosage: 80 MILLIGRAM
     Route: 058
  10. LOVASTATIN [Concomitant]
     Dosage: 20 MILLIGRAM
     Route: 048
  11. OXYGEN [Concomitant]
     Route: 045
     Dates: start: 20110301
  12. MEGESTROL ACETATE [Concomitant]
     Dosage: 40 MILLIGRAM
     Route: 048
  13. PHENYTOIN [Concomitant]
     Dosage: 100 MILLIGRAM
     Route: 048
  14. ABRAXANE [Suspect]
     Route: 051
     Dates: end: 20110301
  15. ALPRAZOLAM [Concomitant]
     Indication: ANXIETY
     Dosage: .5 MILLIGRAM
     Route: 048
  16. GUAIFENESIN AND PSEUDOEPHEDRINE HYDROCHLORIDE [Concomitant]
     Dosage: 600-60
     Route: 048
  17. LISINOPRIL [Concomitant]
     Dosage: 5 MILLIGRAM
     Route: 048
  18. NICOTINE [Concomitant]
     Dosage: 21 MILLIGRAM
     Route: 062
  19. PREDNISONE [Concomitant]
     Dosage: 20 MILLIGRAM
     Route: 048
  20. CARBOPLATIN [Suspect]
     Route: 051
     Dates: end: 20110301
  21. FUROSEMIDE [Concomitant]
     Dosage: 20 MILLIGRAM
     Route: 048
  22. PHENOBARBITAL TAB [Concomitant]
     Dosage: 60 MILLIGRAM
     Route: 048
  23. POTASSIUM CHLORIDE [Concomitant]
     Dosage: 20 MILLIEQUIVALENTS
     Route: 048
  24. SYMBICORT [Concomitant]
     Dosage: 160-4.5/ 2 PUFFS
     Route: 055
  25. MAGNESIUM OXIDE [Concomitant]
     Dosage: 400/250MG
     Route: 048
  26. ESOMEPRAZOLE [Concomitant]
     Dosage: 40 MILLIGRAM
     Route: 065
  27. CITALOPRAM HYDROBROMIDE [Concomitant]
     Dosage: 40 MILLIGRAM
     Route: 048
  28. IPRATROPIUM BROMIDE AND ALBUTEROL SULFATE [Concomitant]
     Dosage: 2 PUFFS
     Route: 055
  29. SENNA-MINT WAF [Concomitant]
     Dosage: 8.6 MILLIGRAM
     Route: 065

REACTIONS (3)
  - PNEUMONIA [None]
  - RESPIRATORY FAILURE [None]
  - NON-SMALL CELL LUNG CANCER [None]
